FAERS Safety Report 18581563 (Version 2)
Quarter: 2021Q2

REPORT INFORMATION
  Report Type: Spontaneous
  Country: CN (occurrence: CN)
  Receive Date: 20201204
  Receipt Date: 20210621
  Transmission Date: 20210717
  Serious: Yes (Other)
  Sender: FDA-Public Use
  Company Number: CN-EMD SERONO-9202797

PATIENT
  Age: 28 Year
  Sex: Female
  Weight: 65 kg

DRUGS (9)
  1. PROGESTERONE. [Suspect]
     Active Substance: PROGESTERONE
     Indication: LUTEAL PHASE DEFICIENCY
     Dates: start: 20200614
  2. DECAPEPTYL                         /00486501/ [Concomitant]
     Active Substance: GONADORELIN
     Indication: POOR RESPONSE TO OVULATION INDUCTION
     Route: 058
     Dates: start: 20200601, end: 20200611
  3. GONAL?F [Suspect]
     Active Substance: FOLLITROPIN
     Route: 058
     Dates: start: 20200609, end: 20200611
  4. VITAMIN D2 + CALCIUM               /07511201/ [Concomitant]
     Indication: MINERAL SUPPLEMENTATION
     Route: 048
  5. DYDROGESTERONE [Concomitant]
     Active Substance: DYDROGESTERONE
     Indication: LUTEAL PHASE DEFICIENCY
     Route: 048
     Dates: start: 20200614
  6. ELEVIT                             /01730301/ [Concomitant]
     Active Substance: FOLIC ACID\IRON\MINERALS\VITAMINS
     Indication: VITAMIN SUPPLEMENTATION
     Route: 048
  7. GONAL?F [Suspect]
     Active Substance: FOLLITROPIN
     Indication: ASSISTED REPRODUCTIVE TECHNOLOGY
     Route: 058
     Dates: start: 20200605, end: 20200608
  8. OVIDREL [Suspect]
     Active Substance: CHORIOGONADOTROPIN ALFA
     Indication: OVULATION INDUCTION
     Route: 058
     Dates: start: 20200612
  9. DECAPEPTYL                         /00486501/ [Concomitant]
     Active Substance: GONADORELIN
     Indication: ASSISTED REPRODUCTIVE TECHNOLOGY
     Route: 058
     Dates: start: 20200522, end: 20200531

REACTIONS (2)
  - Live birth [Recovered/Resolved]
  - Twin pregnancy [Recovered/Resolved]

NARRATIVE: CASE EVENT DATE: 2020
